FAERS Safety Report 7293068-9 (Version None)
Quarter: 2011Q1

REPORT INFORMATION
  Report Type: 
  Country: None (occurrence: None)
  Receive Date: 20110215
  Receipt Date: 20101214
  Transmission Date: 20110831
  Serious: No
  Sender: FDA-Public Use
  Company Number: US-BAYER-2011-008866

PATIENT
  Sex: Female
  Weight: 68 kg

DRUGS (3)
  1. ALEVE (CAPLET) [Suspect]
     Indication: ARTHRITIS
     Dosage: DAILY DOSE 1 DF
     Route: 048
     Dates: start: 20101207
  2. NEXIUM [Concomitant]
  3. TIMOLOL [Concomitant]

REACTIONS (1)
  - ABDOMINAL DISCOMFORT [None]
